FAERS Safety Report 8590982-9 (Version None)
Quarter: 2012Q3

REPORT INFORMATION
  Report Type: 
  Country: None (occurrence: None)
  Receive Date: 20120813
  Receipt Date: 20120803
  Transmission Date: 20120928
  Serious: Yes (Other)
  Sender: FDA-Public Use
  Company Number: US-PERRIGO-12US006728

PATIENT
  Sex: Male
  Weight: 15.873 kg

DRUGS (1)
  1. LORATADINE [Suspect]
     Indication: ACCIDENTAL DRUG INTAKE BY CHILD
     Dosage: UNK, SINGLE
     Route: 048
     Dates: start: 20120731, end: 20120731

REACTIONS (3)
  - BLOOD PRESSURE INCREASED [None]
  - OVERDOSE [None]
  - HEART RATE INCREASED [None]
